FAERS Safety Report 10100555 (Version 1)
Quarter: 2014Q2

REPORT INFORMATION
  Report Type: Spontaneous
  Country: RU (occurrence: RU)
  Receive Date: 20140423
  Receipt Date: 20140423
  Transmission Date: 20141212
  Serious: Yes (Death, Hospitalization, Congenital Anomaly)
  Sender: FDA-Public Use
  Company Number: RU-VIIV HEALTHCARE LIMITED-B0987376A

PATIENT
  Sex: 0

DRUGS (3)
  1. KIVEXA [Suspect]
     Indication: HIV INFECTION
     Route: 064
  2. RITONAVIR [Suspect]
     Indication: HIV INFECTION
     Route: 064
  3. ATAZANAVIR [Suspect]
     Indication: HIV INFECTION
     Route: 064

REACTIONS (3)
  - Heart disease congenital [Fatal]
  - Congenital anomaly in offspring [Fatal]
  - Foetal exposure during pregnancy [Unknown]
